FAERS Safety Report 10747730 (Version 2)
Quarter: 2015Q1

REPORT INFORMATION
  Report Type: Report from Study
  Country: JP (occurrence: JP)
  Receive Date: 20150129
  Receipt Date: 20150209
  Transmission Date: 20150721
  Serious: Yes (Death)
  Sender: FDA-Public Use
  Company Number: JP-ROCHE-1526028

PATIENT
  Age: 66 Year
  Sex: Male
  Weight: 65 kg

DRUGS (9)
  1. TEMODAL [Concomitant]
     Active Substance: TEMOZOLOMIDE
     Indication: ANAPLASTIC ASTROCYTOMA
     Route: 048
     Dates: start: 20140920, end: 20140924
  2. BEVACIZUMAB [Suspect]
     Active Substance: BEVACIZUMAB
     Indication: ANAPLASTIC ASTROCYTOMA
     Route: 041
     Dates: start: 20141017, end: 20141017
  3. RINDERON V [Concomitant]
     Active Substance: BETAMETHASONE VALERATE
     Indication: PROPHYLAXIS
     Route: 048
     Dates: start: 20140829, end: 20141026
  4. BEVACIZUMAB [Suspect]
     Active Substance: BEVACIZUMAB
     Indication: ANAPLASTIC ASTROCYTOMA
     Route: 041
     Dates: start: 20140919, end: 20140919
  5. BEVACIZUMAB [Suspect]
     Active Substance: BEVACIZUMAB
     Indication: MALIGNANT GLIOMA
     Dosage: LAST DOSE PRIOR TO SAE ON 17/OCT/2014
     Route: 041
     Dates: start: 20140822, end: 20140822
  6. BEVACIZUMAB [Suspect]
     Active Substance: BEVACIZUMAB
     Indication: ANAPLASTIC ASTROCYTOMA
     Route: 041
     Dates: start: 20140905, end: 20140905
  7. BEVACIZUMAB [Suspect]
     Active Substance: BEVACIZUMAB
     Indication: ANAPLASTIC ASTROCYTOMA
     Route: 041
     Dates: start: 20141003, end: 20141003
  8. TEMODAL [Concomitant]
     Active Substance: TEMOZOLOMIDE
     Indication: ANAPLASTIC ASTROCYTOMA
     Route: 041
     Dates: start: 20140826, end: 20140830
  9. BAYASPIRIN [Concomitant]
     Active Substance: ASPIRIN
     Route: 048
     Dates: end: 20141026

REACTIONS (1)
  - Pulmonary infarction [Fatal]

NARRATIVE: CASE EVENT DATE: 20141027
